FAERS Safety Report 4445370-3 (Version None)
Quarter: 2004Q3

REPORT INFORMATION
  Report Type: 
  Country: None (occurrence: None)
  Receive Date: 20040903
  Receipt Date: 20040824
  Transmission Date: 20050211
  Serious: Yes (Life-Threatening)
  Sender: FDA-Public Use
  Company Number: 04H-082-0271494-00

PATIENT
  Age: 49 Year
  Sex: Male

DRUGS (2)
  1. DOBUTAMINE HCL [Suspect]
     Indication: ECHOCARDIOGRAM
     Dosage: SEE IMAGE
     Route: 042
  2. ATROPINE [Suspect]
     Indication: ECHOCARDIOGRAM
     Dosage: 0.5 MG, ONCE, INTRAVENOUS
     Route: 042

REACTIONS (6)
  - ARTERIOSPASM CORONARY [None]
  - CHEST PAIN [None]
  - DRUG INTERACTION [None]
  - ELECTROCARDIOGRAM ST SEGMENT ELEVATION [None]
  - ISCHAEMIA [None]
  - VENTRICULAR FIBRILLATION [None]
